FAERS Safety Report 19190897 (Version 1)
Quarter: 2021Q2

REPORT INFORMATION
  Report Type: Spontaneous
  Country: US (occurrence: US)
  Receive Date: 20210428
  Receipt Date: 20210428
  Transmission Date: 20210717
  Serious: Yes (Disabling, Other)
  Sender: FDA-Public Use
  Company Number: US-REGENERON PHARMACEUTICALS, INC.-2021-40679

PATIENT

DRUGS (3)
  1. EYLEA [Suspect]
     Active Substance: AFLIBERCEPT
     Dosage: FELLOW EYE
     Dates: start: 202104, end: 202104
  2. EYLEA [Suspect]
     Active Substance: AFLIBERCEPT
     Indication: PRODUCT USED FOR UNKNOWN INDICATION
     Dosage: UNK, LEFT EYE
  3. EYLEA [Suspect]
     Active Substance: AFLIBERCEPT
     Dosage: RIGHT EYE
     Dates: start: 20210310, end: 20210310

REACTIONS (5)
  - Ocular vasculitis [Unknown]
  - Eye inflammation [Unknown]
  - Blindness [Unknown]
  - Endophthalmitis [Unknown]
  - Vitritis [Unknown]

NARRATIVE: CASE EVENT DATE: 2015
